FAERS Safety Report 13336544 (Version 6)
Quarter: 2022Q3

REPORT INFORMATION
  Report Type: Report from Study
  Country: US (occurrence: US)
  Receive Date: 20170314
  Receipt Date: 20220824
  Transmission Date: 20221027
  Serious: No
  Sender: FDA-Public Use
  Company Number: US-JAZZ-2017-US-001865

PATIENT
  Sex: Male

DRUGS (22)
  1. XYREM [Suspect]
     Active Substance: SODIUM OXYBATE
     Indication: Narcolepsy
     Dosage: 2.25 GRAM, BID
     Dates: start: 201606
  2. XYREM [Suspect]
     Active Substance: SODIUM OXYBATE
     Indication: Cataplexy
     Dosage: DOSE ADJUSTMENT
     Dates: start: 201606, end: 201606
  3. XYREM [Suspect]
     Active Substance: SODIUM OXYBATE
     Dosage: 3.5 GRAM, QD (FIRST DOSE)
     Dates: start: 201610
  4. XYREM [Suspect]
     Active Substance: SODIUM OXYBATE
     Dosage: 3 GRAM, QD (SECOND DOSE)
     Dates: start: 201610
  5. XYREM [Suspect]
     Active Substance: SODIUM OXYBATE
     Dosage: 3.5 GRAM, BID
  6. XYREM [Suspect]
     Active Substance: SODIUM OXYBATE
     Dosage: 4.5 GRAM, BID
  7. XYREM [Suspect]
     Active Substance: SODIUM OXYBATE
     Dosage: 3.75 GRAM, BID
  8. BUSPAR [Suspect]
     Active Substance: BUSPIRONE HYDROCHLORIDE
     Indication: Product used for unknown indication
     Dosage: UNK
     Dates: end: 20171129
  9. IMITREX [Suspect]
     Active Substance: SUMATRIPTAN SUCCINATE
     Indication: Product used for unknown indication
     Dosage: UNK
  10. ERYTHROMYCIN [Suspect]
     Active Substance: ERYTHROMYCIN
     Indication: Product used for unknown indication
     Dosage: UNK
  11. FOCALIN [Concomitant]
     Active Substance: DEXMETHYLPHENIDATE HYDROCHLORIDE
     Indication: Product used for unknown indication
     Dosage: UNK
  12. CYMBALTA [Concomitant]
     Active Substance: DULOXETINE HYDROCHLORIDE
     Indication: Product used for unknown indication
     Dosage: UNK
  13. EFFEXOR [Concomitant]
     Active Substance: VENLAFAXINE HYDROCHLORIDE
     Indication: Product used for unknown indication
     Dosage: UNK
  14. HETLIOZ [Concomitant]
     Active Substance: TASIMELTEON
     Indication: Product used for unknown indication
     Dosage: UNK
  15. IBUPROFEN [Concomitant]
     Active Substance: IBUPROFEN
     Indication: Product used for unknown indication
     Dosage: UNK
  16. CANNABIS SATIVA SUBSP. INDICA TOP [Concomitant]
     Active Substance: CANNABIS SATIVA SUBSP. INDICA TOP
     Indication: Product used for unknown indication
     Dosage: UNK
  17. MELATONIN [Concomitant]
     Active Substance: MELATONIN
     Indication: Product used for unknown indication
     Dosage: UNK
  18. ZYRTEC [Concomitant]
     Active Substance: CETIRIZINE HYDROCHLORIDE
     Indication: Product used for unknown indication
     Dosage: UNK
  19. HUMATROPE [Concomitant]
     Active Substance: SOMATROPIN
     Indication: Product used for unknown indication
     Dosage: UNK
     Dates: start: 20171013
  20. NUVIGIL [Concomitant]
     Active Substance: ARMODAFINIL
     Indication: Product used for unknown indication
     Dosage: UNK
     Dates: start: 20180131
  21. BUSPIRONE HCL [Concomitant]
     Active Substance: BUSPIRONE HYDROCHLORIDE
     Indication: Product used for unknown indication
     Dosage: UNK
     Dates: start: 20220622
  22. VITAMIN D3 [Concomitant]
     Active Substance: CHOLECALCIFEROL
     Indication: Product used for unknown indication
     Dosage: 1,000 UNIT SOFTGEL
     Dates: start: 20180101

REACTIONS (9)
  - Obstructive sleep apnoea syndrome [Recovering/Resolving]
  - Central sleep apnoea syndrome [Recovering/Resolving]
  - Snoring [Not Recovered/Not Resolved]
  - Somnolence [Unknown]
  - Weight decreased [Unknown]
  - Vomiting [Unknown]
  - Feeling abnormal [Recovering/Resolving]
  - Burning sensation [Unknown]
  - Treatment noncompliance [Unknown]

NARRATIVE: CASE EVENT DATE: 20160101
